FAERS Safety Report 8158677-3 (Version None)
Quarter: 2012Q1

REPORT INFORMATION
  Report Type: 
  Country: None (occurrence: None)
  Receive Date: 20120223
  Receipt Date: 20120220
  Transmission Date: 20120608
  Serious: Yes (Hospitalization)
  Sender: FDA-Public Use
  Company Number: GB-TEVA-323647ISR

PATIENT
  Sex: Male

DRUGS (11)
  1. SPIRONOLACTONE [Suspect]
     Indication: ASCITES
     Route: 065
     Dates: start: 20070801
  2. PRAVASTATIN [Concomitant]
     Route: 065
  3. FUROSEMIDE [Concomitant]
     Indication: ASCITES
     Route: 065
     Dates: start: 20090201
  4. PROPRANOLOL [Suspect]
     Indication: PORTAL HYPERTENSION
     Route: 065
     Dates: start: 20070801, end: 20090101
  5. DIDANOSINE [Suspect]
     Indication: HIV INFECTION
     Route: 065
     Dates: end: 20070401
  6. SPIRONOLACTONE [Suspect]
     Route: 065
     Dates: start: 20070801
  7. RANITIDINE [Concomitant]
     Route: 065
  8. ATENOLOL [Suspect]
     Indication: MYOCARDIAL ISCHAEMIA
     Route: 065
     Dates: start: 20050101, end: 20091101
  9. AMILORIDE HYDROCHLORIDE [Concomitant]
     Indication: ASCITES
     Route: 065
     Dates: start: 20080101, end: 20090201
  10. FUROSEMIDE [Concomitant]
     Route: 065
  11. ASPIRIN [Concomitant]
     Route: 065

REACTIONS (3)
  - SCLEROSING ENCAPSULATING PERITONITIS [None]
  - HYPERKALAEMIA [None]
  - LIVER INJURY [None]
